FAERS Safety Report 6900249-X (Version None)
Quarter: 2010Q3

REPORT INFORMATION
  Report Type: 
  Country: None (occurrence: None)
  Receive Date: 20100708
  Receipt Date: 20100401
  Transmission Date: 20110219
  Serious: Yes (Other)
  Sender: FDA-Public Use
  Company Number: 2010041957

PATIENT
  Sex: Female

DRUGS (1)
  1. CHANTIX [Suspect]
     Dates: start: 20080201

REACTIONS (4)
  - ANGER [None]
  - DEPRESSION [None]
  - HEADACHE [None]
  - PARANOIA [None]
